FAERS Safety Report 9857164 (Version 1)
Quarter: 2014Q1

REPORT INFORMATION
  Report Type: Spontaneous
  Country: US (occurrence: US)
  Receive Date: 20140130
  Receipt Date: 20140130
  Transmission Date: 20141002
  Serious: Yes (Congenital Anomaly)
  Sender: FDA-Public Use
  Company Number: US-FRI-1000053173

PATIENT
  Age: 0 Day
  Sex: Male

DRUGS (1)
  1. LEXAPRO [Suspect]
     Route: 064
     Dates: end: 20030123

REACTIONS (4)
  - Fallot^s tetralogy [Unknown]
  - Hypospadias [Unknown]
  - Pulmonary valve incompetence [Unknown]
  - Atrial septal defect [Unknown]
